FAERS Safety Report 13668088 (Version 3)
Quarter: 2017Q3

REPORT INFORMATION
  Report Type: Spontaneous
  Country: US (occurrence: US)
  Receive Date: 20170620
  Receipt Date: 20170830
  Transmission Date: 20171127
  Serious: No
  Sender: FDA-Public Use
  Company Number: US-PFIZER INC-2017264379

PATIENT
  Age: 64 Year
  Sex: Female
  Weight: 59.86 kg

DRUGS (4)
  1. ENOXAPARIN SODIUM. [Concomitant]
     Active Substance: ENOXAPARIN SODIUM
     Dosage: 0.6 ML, UNK
     Dates: start: 201611
  2. LOVENOX [Concomitant]
     Active Substance: ENOXAPARIN SODIUM
     Indication: PULMONARY EMBOLISM
     Dosage: 60 (UNSPECIFIED UNIT), 2X/DAY
     Dates: start: 201611
  3. XALKORI [Suspect]
     Active Substance: CRIZOTINIB
     Indication: LUNG NEOPLASM MALIGNANT
     Dosage: 250 MG, 2X/DAY
     Route: 048
     Dates: start: 20170126
  4. XALKORI [Suspect]
     Active Substance: CRIZOTINIB
     Dosage: 250 UG, 2X/DAY
     Route: 048
     Dates: start: 20170201

REACTIONS (1)
  - Alopecia [Not Recovered/Not Resolved]

NARRATIVE: CASE EVENT DATE: 201704
